FAERS Safety Report 4675617-X (Version None)
Quarter: 2005Q2

REPORT INFORMATION
  Report Type: 
  Country: None (occurrence: None)
  Receive Date: 20050527
  Receipt Date: 20050425
  Transmission Date: 20051028
  Serious: No
  Sender: FDA-Public Use
  Company Number: US-BRISTOL-MYERS SQUIBB COMPANY-12954202

PATIENT
  Age: 27 Year
  Sex: Male
  Weight: 59 kg

DRUGS (3)
  1. ABILIFY [Suspect]
     Indication: SCHIZOPHRENIA
     Route: 048
  2. AMBIEN [Concomitant]
  3. TYLENOL PM [Concomitant]

REACTIONS (4)
  - ANXIETY [None]
  - DELUSION [None]
  - INSOMNIA [None]
  - RESTLESSNESS [None]
